FAERS Safety Report 6303339-8 (Version None)
Quarter: 2009Q3

REPORT INFORMATION
  Report Type: 
  Country: None (occurrence: None)
  Receive Date: 20090810
  Receipt Date: 20090630
  Transmission Date: 20100115
  Serious: No
  Sender: FDA-Public Use
  Company Number: A0794656A

PATIENT
  Age: 53 Year
  Sex: Female

DRUGS (2)
  1. TREXIMET [Suspect]
     Indication: MIGRAINE
     Dosage: 6MG VARIABLE DOSE
     Route: 048
  2. IMITREX INJECTION [Concomitant]

REACTIONS (1)
  - DRUG INEFFECTIVE [None]
